FAERS Safety Report 11186976 (Version 1)
Quarter: 2015Q2

REPORT INFORMATION
  Report Type: Spontaneous
  Country: FI (occurrence: FI)
  Receive Date: 20150615
  Receipt Date: 20150615
  Transmission Date: 20150821
  Serious: Yes (Other)
  Sender: FDA-Public Use
  Company Number: FI-AMGEN-FINSP2015056614

PATIENT
  Age: 61 Year
  Sex: Female

DRUGS (6)
  1. PROTELOS [Concomitant]
     Active Substance: STRONTIUM RANELATE
     Dosage: UNK
  2. BURANA [Concomitant]
     Active Substance: IBUPROFEN
     Dosage: 600 MG, 1X/DAY
  3. ENBREL [Suspect]
     Active Substance: ETANERCEPT
     Indication: RHEUMATOID ARTHRITIS
     Dosage: 40 MG, WEEKLY
     Route: 065
  4. SOLOMET                            /00049601/ [Concomitant]
     Dosage: 4 MG, 1X/DAY
  5. KALCIPOS-D [Concomitant]
     Active Substance: CALCIUM CARBONATE\CHOLECALCIFEROL
     Dosage: 2 TABLETS, DAILY
  6. PROLIA [Concomitant]
     Active Substance: DENOSUMAB
     Dosage: EVERY SIX MONTHS

REACTIONS (1)
  - Drug-induced liver injury [Unknown]
